FAERS Safety Report 16617296 (Version 1)
Quarter: 2019Q3

REPORT INFORMATION
  Report Type: Report from Study
  Country: ES (occurrence: ES)
  Receive Date: 20190723
  Receipt Date: 20190723
  Transmission Date: 20191004
  Serious: Yes (Life-Threatening, Hospitalization, Disabling, Other)
  Sender: FDA-Public Use
  Company Number: IND-ES-009507513-1907ESP011483

PATIENT
  Age: 66 Year
  Sex: Female

DRUGS (6)
  1. MEDI4736 [Suspect]
     Active Substance: DURVALUMAB
     Indication: BLADDER TRANSITIONAL CELL CARCINOMA
     Dosage: 1500 MILLIGRAM, EVERY 4 WEEKS
     Route: 042
     Dates: start: 20190619, end: 20190619
  2. SIMVASTATIN. [Concomitant]
     Active Substance: SIMVASTATIN
     Indication: BLOOD CHOLESTEROL INCREASED
     Dosage: 40 MILLIGRAM, QD
     Route: 002
  3. OLAPARIB. [Suspect]
     Active Substance: OLAPARIB
     Indication: BLADDER TRANSITIONAL CELL CARCINOMA
     Dosage: 150 MILLIGRAM, BID
     Route: 048
     Dates: start: 20190619, end: 20190619
  4. ALPRAZOLAM. [Concomitant]
     Active Substance: ALPRAZOLAM
     Indication: ANXIETY
     Dosage: 25 MILLIGRAM, QD
     Route: 002
  5. ACETAMINOPHEN. [Concomitant]
     Active Substance: ACETAMINOPHEN
     Indication: NEURALGIA
     Dosage: 1.0G AS REQUIRED
     Route: 002
  6. OLMESARTAN MEDOXOMIL. [Concomitant]
     Active Substance: OLMESARTAN MEDOXOMIL
     Indication: HYPERTENSION
     Dosage: 20 MILLIGRAM, QD
     Route: 002

REACTIONS (2)
  - Abdominal pain [Recovering/Resolving]
  - Neutropenia [Recovering/Resolving]

NARRATIVE: CASE EVENT DATE: 20190707
